FAERS Safety Report 7373185-5 (Version None)
Quarter: 2011Q1

REPORT INFORMATION
  Report Type: 
  Country: None (occurrence: None)
  Receive Date: 20110324
  Receipt Date: 20110315
  Transmission Date: 20110831
  Serious: Yes (Disabling)
  Sender: FDA-Public Use
  Company Number: US-ASTRAZENECA-2011SE05704

PATIENT
  Age: 54 Year
  Sex: Female
  Weight: 82.6 kg

DRUGS (3)
  1. SYNTHROID [Concomitant]
  2. IRESSA [Suspect]
     Indication: NON-SMALL CELL LUNG CANCER
     Route: 048
     Dates: start: 20041201
  3. PAIN MEDICATION [Concomitant]
     Indication: PAIN

REACTIONS (5)
  - HYPOTHYROIDISM [None]
  - SKIN TOXICITY [None]
  - HYPOXIA [None]
  - RASH [None]
  - PULMONARY FIBROSIS [None]
